FAERS Safety Report 8568235-4 (Version None)
Quarter: 2012Q3

REPORT INFORMATION
  Report Type: 
  Country: None (occurrence: None)
  Receive Date: 20120803
  Receipt Date: 20120713
  Transmission Date: 20120928
  Serious: No
  Sender: FDA-Public Use
  Company Number: US-ABBOTT-12P-163-0955866-00

PATIENT
  Sex: Male
  Weight: 81.72 kg

DRUGS (7)
  1. GEMFIBROZIL [Concomitant]
     Indication: PRODUCT USED FOR UNKNOWN INDICATION
     Dosage: 2 DAILY
     Route: 048
  2. NIASPAN [Suspect]
     Indication: BLOOD CHOLESTEROL INCREASED
     Dosage: 1 AT BEDTIME
     Route: 048
  3. ZONISAMIDE [Concomitant]
     Indication: HEADACHE
     Route: 048
  4. NIASPAN [Suspect]
     Dosage: 3 AT BEDTIME
     Route: 048
  5. UNKNOWN ALLERGY INJECTIONS [Concomitant]
     Indication: PRODUCT USED FOR UNKNOWN INDICATION
  6. ASPIRIN [Concomitant]
     Indication: PRODUCT USED FOR UNKNOWN INDICATION
     Dosage: WITH DOSE OF NIASPAN
     Route: 048
  7. NIASPAN [Suspect]
     Indication: BLOOD TRIGLYCERIDES INCREASED
     Dosage: 2 AT BEDTIME
     Route: 048

REACTIONS (3)
  - FLUSHING [None]
  - BURNING SENSATION [None]
  - SEXUAL DYSFUNCTION [None]
